FAERS Safety Report 19091634 (Version 1)
Quarter: 2021Q2

REPORT INFORMATION
  Report Type: Spontaneous
  Country: US (occurrence: US)
  Receive Date: 20210402
  Receipt Date: 20210402
  Transmission Date: 20210717
  Serious: Yes (Hospitalization)
  Sender: FDA-Public Use
  Company Number: None

PATIENT
  Age: 70 Year
  Sex: Male

DRUGS (21)
  1. ATORVASTATIN [Concomitant]
     Active Substance: ATORVASTATIN
  2. NO DRUG NAME [Concomitant]
  3. OPSUMIT [Suspect]
     Active Substance: MACITENTAN
     Indication: PULMONARY HYPERTENSION
     Route: 048
  4. DULOXETINE. [Concomitant]
     Active Substance: DULOXETINE
  5. ATOVAQUONE. [Concomitant]
     Active Substance: ATOVAQUONE
  6. ALBUTEROL HFA [Concomitant]
     Active Substance: ALBUTEROL SULFATE
  7. MELATONIN [Concomitant]
     Active Substance: MELATONIN
  8. SENNA [Concomitant]
     Active Substance: SENNA LEAF\SENNOSIDES\SENNOSIDES A AND B
  9. NORCO [Concomitant]
     Active Substance: ACETAMINOPHEN\HYDROCODONE BITARTRATE
  10. AMIODARONE [Concomitant]
     Active Substance: AMIODARONE
  11. PREDNISONE. [Concomitant]
     Active Substance: PREDNISONE
  12. ASPIRIN. [Concomitant]
     Active Substance: ASPIRIN
  13. TORSEMIDE. [Concomitant]
     Active Substance: TORSEMIDE
  14. SPIRIVA [Concomitant]
     Active Substance: TIOTROPIUM BROMIDE MONOHYDRATE
  15. COLACE [Concomitant]
     Active Substance: DOCUSATE SODIUM
  16. SILDENAFIL. [Concomitant]
     Active Substance: SILDENAFIL
  17. GRAZODONE [Concomitant]
  18. OMEPRAZOLE. [Concomitant]
     Active Substance: OMEPRAZOLE
  19. FLONASE [Concomitant]
     Active Substance: FLUTICASONE PROPIONATE
  20. ALLOPURINOL. [Concomitant]
     Active Substance: ALLOPURINOL
  21. VITAMIN D3 [Concomitant]
     Active Substance: CHOLECALCIFEROL

REACTIONS (4)
  - Mental status changes [None]
  - Acute kidney injury [None]
  - Right ventricular failure [None]
  - Fluid overload [None]

NARRATIVE: CASE EVENT DATE: 20210319
